FAERS Safety Report 8050021-5 (Version None)
Quarter: 2012Q1

REPORT INFORMATION
  Report Type: 
  Country: None (occurrence: None)
  Receive Date: 20120117
  Receipt Date: 20120106
  Transmission Date: 20120608
  Serious: Yes (Other)
  Sender: FDA-Public Use
  Company Number: FR-JNJFOC-20120102811

PATIENT
  Age: 64 Year
  Sex: Male

DRUGS (5)
  1. REMICADE [Suspect]
     Route: 042
     Dates: start: 20090101, end: 20091001
  2. REMICADE [Suspect]
     Route: 042
     Dates: start: 20090201, end: 20090101
  3. METHOTREXATE [Concomitant]
     Indication: SARCOIDOSIS
     Route: 065
  4. PREDNISONE [Concomitant]
     Indication: SARCOIDOSIS
     Route: 065
  5. REMICADE [Suspect]
     Indication: SARCOIDOSIS
     Route: 042

REACTIONS (5)
  - MYOSITIS [None]
  - NODULE [None]
  - ATRIAL FIBRILLATION [None]
  - INTERSTITIAL LUNG DISEASE [None]
  - ACUTE PULMONARY OEDEMA [None]
